FAERS Safety Report 4350655-5 (Version None)
Quarter: 2004Q2

REPORT INFORMATION
  Report Type: 
  Country: None (occurrence: None)
  Receive Date: 20040429
  Receipt Date: 20040415
  Transmission Date: 20050107
  Serious: Yes (Death, Life-Threatening, Hospitalization)
  Sender: FDA-Public Use
  Company Number: A-CH2003-03559

PATIENT
  Age: 66 Year
  Sex: Female
  Weight: 74 kg

DRUGS (9)
  1. TRACLEER [Suspect]
     Indication: PULMONARY HYPERTENSION
     Dosage: 62.5 MG, BID, ORAL; SEE IMAGE
     Route: 048
     Dates: start: 20030215, end: 20030311
  2. TRACLEER [Suspect]
     Indication: PULMONARY HYPERTENSION
     Dosage: 62.5 MG, BID, ORAL; SEE IMAGE
     Route: 048
     Dates: start: 20030312, end: 20040328
  3. ILOPROST (ILOPROST) [Concomitant]
  4. WARFARIN SODIUM [Concomitant]
  5. PREDNISOLONE [Concomitant]
  6. CALCIUM [Concomitant]
  7. CYANOCOBALAMIN [Concomitant]
  8. FELODIPINE [Concomitant]
  9. LEVOTHYROXINE [Concomitant]

REACTIONS (9)
  - CARDIAC FAILURE [None]
  - CYANOSIS [None]
  - DRUG INEFFECTIVE [None]
  - DYSPNOEA EXACERBATED [None]
  - GENERAL PHYSICAL HEALTH DETERIORATION [None]
  - LEFT VENTRICULAR FAILURE [None]
  - PO2 DECREASED [None]
  - RALES [None]
  - UPPER RESPIRATORY TRACT INFECTION [None]
